FAERS Safety Report 8349647-0 (Version None)
Quarter: 2012Q2

REPORT INFORMATION
  Report Type: 
  Country: None (occurrence: None)
  Receive Date: 20120510
  Receipt Date: 20120508
  Transmission Date: 20120825
  Serious: Yes (Other)
  Sender: FDA-Public Use
  Company Number: US-PFIZER INC-2012081084

PATIENT
  Sex: Female
  Weight: 83.9 kg

DRUGS (15)
  1. IBUPROFEN (ADVIL) [Concomitant]
     Dosage: UNK, AS NEEDED
  2. ZOLOFT [Concomitant]
     Dosage: 50 MG, 1X/DAY
  3. CARAFATE [Concomitant]
     Dosage: 1 MG, 4X/DAY
  4. ALBUTEROL [Concomitant]
     Indication: DYSPNOEA
     Dosage: UNK
  5. TOPAMAX [Concomitant]
     Dosage: 100 MG, 1X/DAY
  6. PREDNISONE [Concomitant]
     Dosage: 30 MG, 1X/DAY
  7. PROTONIX [Concomitant]
     Dosage: 40 MG, 1X/DAY
  8. TYLENOL (CAPLET) [Concomitant]
     Dosage: UNK
  9. NEURONTIN [Concomitant]
     Dosage: 300 MG, 1X/DAY
  10. BENADRYL [Concomitant]
     Dosage: UNK
  11. MIRAPEX [Concomitant]
     Dosage: 0.5 MG, 1X/DAY
  12. CHANTIX [Suspect]
     Dosage: 0.5 MG, 2X/DAY
     Route: 048
     Dates: start: 20120301
  13. OXYCODONE [Concomitant]
     Dosage: 15 MG, 3X/DAY
  14. CHANTIX [Suspect]
     Indication: SMOKING CESSATION THERAPY
     Dosage: 0.5 MG, 1X/DAY
     Route: 048
     Dates: start: 20120323, end: 20120301
  15. SYNTHROID [Concomitant]
     Dosage: 0.1 MG, 1X/DAY

REACTIONS (2)
  - HYPERTENSION [None]
  - MALAISE [None]
